FAERS Safety Report 19077260 (Version 3)
Quarter: 2021Q4

REPORT INFORMATION
  Report Type: Report from Study
  Country: US (occurrence: US)
  Receive Date: 20210331
  Receipt Date: 20211104
  Transmission Date: 20220303
  Serious: Yes (Other)
  Sender: FDA-Public Use
  Company Number: NVSC2021US067853

PATIENT
  Age: 80 Year
  Sex: Male

DRUGS (2)
  1. ENTRESTO [Suspect]
     Active Substance: SACUBITRIL\VALSARTAN
     Indication: Product used for unknown indication
     Dosage: 50 MG, BID (24/26 MG)
     Route: 048
  2. ENTRESTO [Suspect]
     Active Substance: SACUBITRIL\VALSARTAN
     Dosage: 100 MG, BID (49/51 MG)
     Route: 048

REACTIONS (13)
  - Renal failure [Unknown]
  - Skin fibrosis [Unknown]
  - Throat clearing [Unknown]
  - Rhinorrhoea [Unknown]
  - Dyspnoea [Unknown]
  - Peripheral swelling [Unknown]
  - Cardiomegaly [Unknown]
  - Tendon injury [Unknown]
  - Oedema [Unknown]
  - Cough [Unknown]
  - Hypertension [Unknown]
  - Blood potassium increased [Unknown]
  - Product dose omission issue [Unknown]
